FAERS Safety Report 23823075 (Version 1)
Quarter: 2024Q2

REPORT INFORMATION
  Report Type: Spontaneous
  Country: NL (occurrence: NL)
  Receive Date: 20240507
  Receipt Date: 20240507
  Transmission Date: 20240715
  Serious: Yes (Other)
  Sender: FDA-Public Use
  Company Number: NL-CELLTRION INC.-2024NL010086

PATIENT

DRUGS (3)
  1. RITUXIMAB [Suspect]
     Active Substance: RITUXIMAB
     Indication: Scleritis
     Dosage: 1000 MG, INFUUS 1000MG / 250ML
     Dates: start: 20210727, end: 20210810
  2. PREDNISOLONE [Concomitant]
     Active Substance: PREDNISOLONE
     Dosage: 100MG/50ML
  3. ISONIAZID [Concomitant]
     Active Substance: ISONIAZID
     Dosage: TABLET, 200 MG (MILLIGRAM)

REACTIONS (4)
  - Choroidal detachment [Recovered/Resolved]
  - Retinal detachment [Recovered/Resolved]
  - Periorbital cellulitis [Recovered/Resolved]
  - Off label use [Unknown]
